FAERS Safety Report 9169047 (Version 1)
Quarter: 2013Q1

REPORT INFORMATION
  Report Type: Spontaneous
  Country: US (occurrence: None)
  Receive Date: 20130314
  Receipt Date: 20130314
  Transmission Date: 20140127
  Serious: Yes (Other)
  Sender: FDA-Public Use
  Company Number: None

PATIENT
  Age: 26 Year
  Sex: Female
  Weight: 69.4 kg

DRUGS (1)
  1. AMPHETAMINE CAP 20 MG ER ACTAVIS [Suspect]
     Indication: ATTENTION DEFICIT/HYPERACTIVITY DISORDER
     Dosage: 1  DAILY  PO
     Route: 048
     Dates: start: 20130307, end: 20130313

REACTIONS (3)
  - Headache [None]
  - Drug effect decreased [None]
  - Product substitution issue [None]
